FAERS Safety Report 11003207 (Version 1)
Quarter: 2015Q2

REPORT INFORMATION
  Report Type: Spontaneous
  Country: US (occurrence: None)
  Receive Date: 20150408
  Receipt Date: 20150408
  Transmission Date: 20150821
  Serious: Yes (Hospitalization, Disabling)
  Sender: FDA-Public Use
  Company Number: None

PATIENT
  Sex: Male

DRUGS (7)
  1. VICODIN [Concomitant]
     Active Substance: ACETAMINOPHEN\HYDROCODONE BITARTRATE
  2. VITAMIN D3 [Concomitant]
     Active Substance: CHOLECALCIFEROL
  3. H.P. ACTHAR [Suspect]
     Active Substance: CORTICOTROPIN
     Indication: MULTIPLE SCLEROSIS
     Dosage: AS NEEDED PER DAY
     Dates: start: 20141010, end: 201503
  4. VITAMIN B12 [Concomitant]
     Active Substance: CYANOCOBALAMIN
  5. NEURONTIN [Concomitant]
     Active Substance: GABAPENTIN
  6. CLONAZEPAM. [Concomitant]
     Active Substance: CLONAZEPAM
  7. FOLIC ACID. [Concomitant]
     Active Substance: FOLIC ACID

REACTIONS (7)
  - Fatigue [None]
  - Wheelchair user [None]
  - Depression [None]
  - Tremor [None]
  - Blood potassium decreased [None]
  - Local swelling [None]
  - Hypoaesthesia [None]
